FAERS Safety Report 18287654 (Version 1)
Quarter: 2020Q3

REPORT INFORMATION
  Report Type: Spontaneous
  Country: DE (occurrence: DE)
  Receive Date: 20200921
  Receipt Date: 20200921
  Transmission Date: 20201103
  Serious: Yes (Hospitalization)
  Sender: FDA-Public Use
  Company Number: DE-ACCORD-201509

PATIENT
  Age: 80 Year
  Sex: Female

DRUGS (12)
  1. FUROSEMIDE. [Concomitant]
     Active Substance: FUROSEMIDE
     Dosage: 125 MG, 0.5?0?0?0, TABLET
     Route: 048
  2. ESCITALOPRAM [Concomitant]
     Active Substance: ESCITALOPRAM OXALATE
     Dosage: 3 GTT, 1?0?0?0, DROPS
     Route: 048
  3. AMLODIPINE [Concomitant]
     Active Substance: AMLODIPINE BESYLATE
     Dosage: 10 MG, 0?0?0.5?0, TABLET
     Route: 048
  4. DEFERASIROX. [Concomitant]
     Active Substance: DEFERASIROX
     Dosage: 360 MG, 1?0?0?0, TABLET
     Route: 048
  5. COLECALCIFEROL [Concomitant]
     Active Substance: CHOLECALCIFEROL
     Dosage: 20,000 IU / MONTH, 2X, CAPSULE
     Route: 048
  6. PHENPROCOUMON [Suspect]
     Active Substance: PHENPROCOUMON
     Indication: PRODUCT USED FOR UNKNOWN INDICATION
     Dosage: 3 MG, ACCORDING TO INR, TABLETS
     Route: 048
  7. SPIRONOLACTONE. [Suspect]
     Active Substance: SPIRONOLACTONE
     Indication: PRODUCT USED FOR UNKNOWN INDICATION
     Dosage: 50 MG, 0.5?0?0?0, TABLET
     Route: 048
  8. METOPROLOL. [Concomitant]
     Active Substance: METOPROLOL
     Dosage: 47.5 MG, 0.5?0?0.5?0, PROLONGED?RELEASE TABLET
     Route: 048
  9. URAPIDIL [Concomitant]
     Active Substance: URAPIDIL
     Dosage: 30 MG, 1?0?0?0, PROLONGED?RELEASE CAPSULE
     Route: 048
  10. FEBUXOSTAT. [Concomitant]
     Active Substance: FEBUXOSTAT
     Dosage: 80 MG, 0.5?0?0?0, TABLET
     Route: 048
  11. MIRCERA [Concomitant]
     Active Substance: METHOXY POLYETHYLENE GLYCOL-EPOETIN BETA
     Dosage: STRENGTH: 100 MINCROGRAMS, 100 UG, EVERY 14 DAYS
     Route: 058
  12. CANDESARTAN. [Concomitant]
     Active Substance: CANDESARTAN
     Dosage: 8 MG, 1?0?1?0, TABLET
     Route: 048

REACTIONS (5)
  - Fatigue [Recovering/Resolving]
  - Pallor [Recovering/Resolving]
  - General physical health deterioration [Recovering/Resolving]
  - Anaemia [Recovering/Resolving]
  - Haemorrhoidal haemorrhage [Recovering/Resolving]
